FAERS Safety Report 8967886 (Version 1)
Quarter: 2012Q4

REPORT INFORMATION
  Report Type: 
  Country: US (occurrence: US)
  Receive Date: 20121218
  Receipt Date: 20121218
  Transmission Date: 20130627
  Serious: No
  Sender: FDA-Public Use
  Company Number: US-GLAXOSMITHKLINE-A0958299A

PATIENT
  Age: 52 Year
  Sex: Male

DRUGS (7)
  1. COREG CR [Suspect]
     Indication: LEFT VENTRICULAR DYSFUNCTION
     Dosage: 10MG Per day
     Route: 048
     Dates: start: 201010
  2. PAXIL [Suspect]
     Indication: POST-TRAUMATIC STRESS DISORDER
     Dosage: 20MG Per day
     Route: 048
     Dates: start: 200910, end: 200910
  3. SYNTHROID [Concomitant]
  4. BABY ASPIRIN [Concomitant]
  5. FISH OIL [Concomitant]
  6. SAWPALMETTO [Concomitant]
  7. CORDARONE [Concomitant]

REACTIONS (2)
  - Hypotension [Not Recovered/Not Resolved]
  - Palpitations [Unknown]
